FAERS Safety Report 5065815-8 (Version None)
Quarter: 2006Q3

REPORT INFORMATION
  Report Type: 
  Country: None (occurrence: None)
  Receive Date: 20060725
  Receipt Date: 20060718
  Transmission Date: 20061208
  Serious: Yes (Hospitalization, Other)
  Sender: FDA-Public Use
  Company Number: GBWYE883804AUG05

PATIENT
  Age: 52 Year
  Sex: Female

DRUGS (19)
  1. RAPAMUNE [Suspect]
     Dosage: 3 MG 1X PER 1 DAY
     Route: 048
     Dates: start: 20050610
  2. MYCOPHENOLATE MOFETIL (MYCOPHENOLATE MOFETIL, , 0) [Suspect]
     Dosage: 500 MG 2X PER 1 DAY
     Route: 048
     Dates: start: 20050710, end: 20050814
  3. PREDNISOLONE [Suspect]
     Dosage: SEE IMAGE
     Route: 048
     Dates: end: 20050820
  4. PREDNISOLONE [Suspect]
     Dosage: SEE IMAGE
     Route: 048
     Dates: start: 20050610
  5. ZENAPAX [Suspect]
     Dosage: 75 MG 2X PER 1 DAY
     Route: 042
     Dates: start: 20050610, end: 20050624
  6. LANSOPRAZOLE [Concomitant]
  7. ATENOLOL [Concomitant]
  8. IRBESARTAN [Concomitant]
  9. FUROSEMIDE [Concomitant]
  10. MINOXIDIL [Concomitant]
  11. ASPIRIN TAB [Concomitant]
  12. ALFACALCIDOL [Concomitant]
  13. ATORVASTATIN CALCIUM [Concomitant]
  14. SODIUM BICARBONATE [Concomitant]
  15. ARANESP [Concomitant]
  16. CORSODYL (CHLORHEXIDINE GLUCONATE) [Concomitant]
  17. FRAGMIN [Concomitant]
  18. TACROLIMUS [Concomitant]
  19. DOXAZOSIN [Concomitant]

REACTIONS (12)
  - BLOOD CREATININE INCREASED [None]
  - CATHETER RELATED COMPLICATION [None]
  - COMPLICATIONS OF TRANSPLANTED KIDNEY [None]
  - HAEMODIALYSIS [None]
  - HYPERTENSION [None]
  - KIDNEY TRANSPLANT REJECTION [None]
  - MALAISE [None]
  - PANCREATITIS [None]
  - PHARYNGOLARYNGEAL PAIN [None]
  - PRODUCTIVE COUGH [None]
  - PYREXIA [None]
  - RENAL FAILURE [None]
